FAERS Safety Report 6387707-4 (Version None)
Quarter: 2009Q4

REPORT INFORMATION
  Report Type: 
  Country: None (occurrence: None)
  Receive Date: 20091005
  Receipt Date: 20090929
  Transmission Date: 20100525
  Serious: No
  Sender: FDA-Public Use
  Company Number: US-B.I. PHARMACEUTICALS,INC./RIDGEFIELD-2009-BP-11448BP

PATIENT
  Sex: Female

DRUGS (4)
  1. SPIRIVA [Suspect]
     Indication: CHRONIC OBSTRUCTIVE PULMONARY DISEASE
     Dosage: 18 MCG
     Route: 055
     Dates: start: 20070901, end: 20090901
  2. LYRICA [Concomitant]
     Indication: NEURALGIA
     Route: 048
     Dates: start: 20040101
  3. PERCOCET [Concomitant]
     Indication: NEURALGIA
     Route: 048
     Dates: start: 20040101
  4. TYLENOL (CAPLET) [Concomitant]
     Indication: NEURALGIA
     Route: 048
     Dates: start: 20040101

REACTIONS (2)
  - COUGH [None]
  - DYSPNOEA [None]
